FAERS Safety Report 9259682 (Version 3)
Quarter: 2013Q3

REPORT INFORMATION
  Report Type: Spontaneous
  Country: US (occurrence: US)
  Receive Date: 20130429
  Receipt Date: 20130709
  Transmission Date: 20140515
  Serious: Yes (Hospitalization)
  Sender: FDA-Public Use
  Company Number: US-BIOGENIDEC-2013BI037197

PATIENT
  Age: 48 Year
  Sex: Female

DRUGS (20)
  1. TYSABRI [Suspect]
     Indication: MULTIPLE SCLEROSIS
     Route: 042
     Dates: start: 20120422, end: 20130205
  2. ABILIFY [Concomitant]
  3. ALBUTEROL INHALATION [Concomitant]
  4. AMANTADINE [Concomitant]
  5. CRESTOR [Concomitant]
  6. CYMBALTA [Concomitant]
  7. ISOSORBIDE MONONITRATE [Concomitant]
  8. KEPPRA [Concomitant]
  9. KLONOPIN [Concomitant]
  10. OMEPRAZOLE [Concomitant]
  11. SYMBICORT [Concomitant]
  12. SYNTHROID [Concomitant]
     Dosage: DOSE UNIT:200
  13. TOFRANIL [Concomitant]
  14. TOPAMAX [Concomitant]
  15. TOPAMAX [Concomitant]
  16. TRAZODONE [Concomitant]
  17. VESICARE [Concomitant]
  18. XANAX [Concomitant]
  19. OPANA [Concomitant]
  20. OXYCODONE [Concomitant]

REACTIONS (5)
  - Device related infection [Recovered/Resolved]
  - Staphylococcal infection [Unknown]
  - Cellulitis [Unknown]
  - Fall [Recovered/Resolved]
  - Limb injury [Unknown]
